FAERS Safety Report 11327465 (Version 1)
Quarter: 2015Q3

REPORT INFORMATION
  Report Type: Spontaneous
  Country: IT (occurrence: IT)
  Receive Date: 20150731
  Receipt Date: 20150731
  Transmission Date: 20151125
  Serious: Yes (Hospitalization, Other)
  Sender: FDA-Public Use
  Company Number: IT-GILEAD-2015-0165521

PATIENT
  Age: 44 Year
  Sex: Male
  Weight: 108 kg

DRUGS (10)
  1. OLYSIO [Suspect]
     Active Substance: SIMEPREVIR
     Indication: HEPATIC CIRRHOSIS
     Dosage: 150 MG, QD
     Route: 048
     Dates: start: 20150612
  2. PANTORC [Concomitant]
     Active Substance: PANTOPRAZOLE SODIUM
  3. REBETOL [Suspect]
     Active Substance: RIBAVIRIN
     Indication: HEPATIC CIRRHOSIS
     Dosage: 1200 MG, QD
     Route: 048
     Dates: start: 20150612, end: 20150706
  4. REBETOL [Suspect]
     Active Substance: RIBAVIRIN
     Dosage: 1000 MG, QD
     Route: 048
     Dates: start: 20150707, end: 20150720
  5. INDERAL [Concomitant]
     Active Substance: PROPRANOLOL HYDROCHLORIDE
     Dosage: 10 MG, UNK
  6. SOVALDI [Suspect]
     Active Substance: SOFOSBUVIR
     Indication: HEPATIC CIRRHOSIS
     Dosage: 400 MG, QD
     Route: 048
     Dates: start: 20150612
  7. REBETOL [Suspect]
     Active Substance: RIBAVIRIN
     Dosage: 800 MG, QD
     Route: 048
     Dates: start: 20150721
  8. LAEVOLAC [Concomitant]
     Active Substance: LACTULOSE
  9. NORMIX [Concomitant]
     Active Substance: RIFAXIMIN
     Route: 048
  10. LUVION                             /00252502/ [Concomitant]
     Active Substance: CANRENOATE POTASSIUM
     Dosage: 100 MG, UNK
     Route: 048

REACTIONS (2)
  - Portal vein thrombosis [Not Recovered/Not Resolved]
  - Blood bilirubin increased [Not Recovered/Not Resolved]

NARRATIVE: CASE EVENT DATE: 20150707
